FAERS Safety Report 5133096-2 (Version None)
Quarter: 2006Q4

REPORT INFORMATION
  Report Type: 
  Country: None (occurrence: None)
  Receive Date: 20061017
  Receipt Date: 20061003
  Transmission Date: 20070319
  Serious: Yes (Other)
  Sender: FDA-Public Use
  Company Number: 30191

PATIENT
  Age: 61 Year
  Sex: Male

DRUGS (1)
  1. ALDARA [Suspect]
     Indication: SKIN PAPILLOMA
     Dosage: (1 UNSPEC., 1 IN 1 DAY (S0, TOPICAL
     Route: 061
     Dates: start: 20060911, end: 20060901

REACTIONS (6)
  - ERYTHEMA [None]
  - EYE IRRITATION [None]
  - INFLAMMATION [None]
  - OCULAR HYPERAEMIA [None]
  - VISION BLURRED [None]
  - WRONG TECHNIQUE IN DRUG USAGE PROCESS [None]
